FAERS Safety Report 20164246 (Version 1)
Quarter: 2021Q4

REPORT INFORMATION
  Report Type: Report from Study
  Country: US (occurrence: US)
  Receive Date: 20211209
  Receipt Date: 20211209
  Transmission Date: 20220303
  Serious: Yes (Hospitalization)
  Sender: FDA-Public Use
  Company Number: US-JNJFOC-20211201698

PATIENT
  Age: 49 Year
  Sex: Female

DRUGS (2)
  1. SPRAVATO [Suspect]
     Active Substance: ESKETAMINE
     Indication: Depression
     Dosage: 53 DOSES
     Dates: start: 20200507, end: 20211103
  2. SPRAVATO [Suspect]
     Active Substance: ESKETAMINE
     Dosage: RECENT DOSE
     Dates: start: 20211112, end: 20211112

REACTIONS (1)
  - Intentional self-injury [Recovered/Resolved]

NARRATIVE: CASE EVENT DATE: 20211116
